FAERS Safety Report 13229198 (Version 1)
Quarter: 2017Q1

REPORT INFORMATION
  Report Type: Report from Study
  Country: US (occurrence: US)
  Receive Date: 20170214
  Receipt Date: 20170214
  Transmission Date: 20170428
  Serious: Yes (Hospitalization, Other)
  Sender: FDA-Public Use
  Company Number: US-AMGEN-USASL2017021545

PATIENT
  Age: 70 Year
  Sex: Female

DRUGS (1)
  1. ENBREL [Suspect]
     Active Substance: ETANERCEPT
     Indication: PSORIATIC ARTHROPATHY
     Dosage: UNK UNK, ONCE A WEEK
     Route: 065

REACTIONS (3)
  - Cellulitis [Unknown]
  - Animal bite [Unknown]
  - Surgery [Unknown]

NARRATIVE: CASE EVENT DATE: 2016
